FAERS Safety Report 9470404 (Version 1)
Quarter: 2013Q3

REPORT INFORMATION
  Report Type: Spontaneous
  Country: US (occurrence: None)
  Receive Date: 20130820
  Receipt Date: 20130820
  Transmission Date: 20140515
  Serious: Yes (Other)
  Sender: FDA-Public Use
  Company Number: None

PATIENT
  Age: 36 Year
  Sex: Female
  Weight: 58.97 kg

DRUGS (1)
  1. METHYLPREDNISOLONE [Suspect]
     Indication: BACK PAIN
     Dosage: 6?FOUR TIMES DAILY?TAKEN BY MOUTH?
     Route: 048
     Dates: start: 20130805, end: 20130806

REACTIONS (5)
  - Restlessness [None]
  - Headache [None]
  - Dysstasia [None]
  - Restless legs syndrome [None]
  - Sleep disorder [None]
